FAERS Safety Report 9366596 (Version 1)
Quarter: 2013Q2

REPORT INFORMATION
  Report Type: Spontaneous
  Country: US (occurrence: US)
  Receive Date: 20130625
  Receipt Date: 20130625
  Transmission Date: 20140414
  Serious: Yes (Hospitalization)
  Sender: FDA-Public Use
  Company Number: US-GILEAD-2013-0076278

PATIENT
  Sex: Female

DRUGS (3)
  1. LETAIRIS [Suspect]
     Indication: PRODUCT USED FOR UNKNOWN INDICATION
     Dosage: 10 MG, UNK
  2. LETAIRIS [Suspect]
  3. LETAIRIS [Suspect]

REACTIONS (4)
  - Adverse drug reaction [Unknown]
  - Fluid retention [Unknown]
  - Malaise [Unknown]
  - Dyspnoea [Unknown]
